FAERS Safety Report 22122699 (Version 1)
Quarter: 2023Q1

REPORT INFORMATION
  Report Type: Spontaneous
  Country: BR (occurrence: BR)
  Receive Date: 20230321
  Receipt Date: 20230321
  Transmission Date: 20230417
  Serious: Yes (Other)
  Sender: FDA-Public Use
  Company Number: BR-ABBVIE-4698720

PATIENT
  Sex: Male
  Weight: 79 kg

DRUGS (5)
  1. HUMIRA [Suspect]
     Active Substance: ADALIMUMAB
     Indication: Psoriatic arthropathy
     Dosage: STRENGTH 40 MILLIGRAM
     Route: 058
     Dates: start: 2022
  2. QUETIAPINE [Concomitant]
     Active Substance: QUETIAPINE
     Indication: Product used for unknown indication
     Dosage: 1 TABLET?STRENGTH 250 MILLIGRAM
  3. DESVENLAFAXINE [Concomitant]
     Active Substance: DESVENLAFAXINE
     Indication: Product used for unknown indication
     Dosage: 1 TABLET?STRENGTH 100 MILLIGRAM
  4. DEPAKOTE [Concomitant]
     Active Substance: DIVALPROEX SODIUM
     Indication: Product used for unknown indication
     Dosage: 1 TABLET?STRENGTH 250 MILLIGRAM
  5. ZOLPIDEM [Concomitant]
     Active Substance: ZOLPIDEM TARTRATE
     Indication: Product used for unknown indication
     Dosage: 1 TABLET?STRENGTH 10 MILLIGRAM

REACTIONS (2)
  - Umbilical hernia [Not Recovered/Not Resolved]
  - Haemorrhoids [Not Recovered/Not Resolved]
